FAERS Safety Report 6224162-9 (Version None)
Quarter: 2009Q2

REPORT INFORMATION
  Report Type: 
  Country: None (occurrence: None)
  Receive Date: 20090612
  Receipt Date: 20090312
  Transmission Date: 20091009
  Serious: No
  Sender: FDA-Public Use
  Company Number: US-ABBOTT-09P-163-0562536-00

PATIENT
  Sex: Female
  Weight: 64.468 kg

DRUGS (5)
  1. HUMIRA [Suspect]
     Indication: CROHN'S DISEASE
  2. HUMIRA [Suspect]
     Dates: start: 20081203, end: 20081203
  3. CYMBALTA [Concomitant]
     Indication: ANXIETY
  4. CYMBALTA [Concomitant]
     Indication: PANIC ATTACK
  5. TOPROL-XL [Concomitant]
     Indication: DRUG USE FOR UNKNOWN INDICATION

REACTIONS (7)
  - ANOREXIA [None]
  - DIARRHOEA [None]
  - HYPOAESTHESIA [None]
  - INTERVERTEBRAL DISC COMPRESSION [None]
  - MALAISE [None]
  - MUSCULAR WEAKNESS [None]
  - PAIN [None]
